FAERS Safety Report 5722765-9 (Version None)
Quarter: 2008Q2

REPORT INFORMATION
  Report Type: 
  Country: None (occurrence: None)
  Receive Date: 20080429
  Receipt Date: 20080206
  Transmission Date: 20081010
  Serious: No
  Sender: FDA-Public Use
  Company Number: US-ASTRAZENECA-2008UW02483

PATIENT
  Age: 74 Year
  Sex: Female

DRUGS (5)
  1. NEXIUM [Suspect]
     Indication: GASTRITIS
     Route: 048
     Dates: start: 20070701
  2. CAPTOPRIL [Concomitant]
  3. VERAPAMIL [Concomitant]
  4. OMEGA 3 [Concomitant]
  5. CENTRUM VITAMIN [Concomitant]

REACTIONS (3)
  - ALOPECIA [None]
  - ILL-DEFINED DISORDER [None]
  - PRURITUS [None]
